FAERS Safety Report 10637793 (Version 1)
Quarter: 2014Q4

REPORT INFORMATION
  Report Type: Spontaneous
  Country: US (occurrence: None)
  Receive Date: 20141204
  Receipt Date: 20141204
  Transmission Date: 20150529
  Serious: Yes (Hospitalization)
  Sender: FDA-Public Use
  Company Number: None

PATIENT
  Age: 78 Year
  Sex: Male
  Weight: 66 kg

DRUGS (7)
  1. METHOTREXATE [Suspect]
     Active Substance: METHOTREXATE
  2. CYCLOPHOSPHAMIDE. [Suspect]
     Active Substance: CYCLOPHOSPHAMIDE
  3. RITUXIMAB (MOAB C2B8 ANTI CD20, CHIMERIC) [Suspect]
     Active Substance: RITUXIMAB
  4. ETOPOSIDE (VP-16) [Suspect]
     Active Substance: ETOPOSIDE
  5. VINCRISTINE SULFATE. [Suspect]
     Active Substance: VINCRISTINE SULFATE
  6. PREDNISONE. [Suspect]
     Active Substance: PREDNISONE
  7. DOXORUBICIN [Suspect]
     Active Substance: DOXORUBICIN

REACTIONS (5)
  - Asthenia [None]
  - Hypotension [None]
  - Febrile neutropenia [None]
  - Dizziness [None]
  - Systemic inflammatory response syndrome [None]

NARRATIVE: CASE EVENT DATE: 20141123
